FAERS Safety Report 5978569-5 (Version None)
Quarter: 2008Q4

REPORT INFORMATION
  Report Type: 
  Country: None (occurrence: None)
  Receive Date: 20081204
  Receipt Date: 20081128
  Transmission Date: 20090506
  Serious: Yes (Other)
  Sender: FDA-Public Use
  Company Number: A0758985A

PATIENT
  Age: 35 Year
  Sex: Female

DRUGS (2)
  1. TYKERB [Suspect]
     Dosage: 1250MG PER DAY
     Route: 048
     Dates: start: 20071001
  2. CAPECITABINE [Concomitant]

REACTIONS (6)
  - ASTIGMATISM [None]
  - DEMYELINATION [None]
  - HEADACHE [None]
  - MYOPIA [None]
  - PALMAR-PLANTAR ERYTHRODYSAESTHESIA SYNDROME [None]
  - VISION BLURRED [None]
